FAERS Safety Report 24986510 (Version 1)
Quarter: 2025Q1

REPORT INFORMATION
  Report Type: Spontaneous
  Country: US (occurrence: None)
  Receive Date: 20250219
  Receipt Date: 20250219
  Transmission Date: 20250409
  Serious: Yes (Other)
  Sender: FDA-CTU
  Company Number: None

PATIENT
  Age: 71 Year
  Sex: Male

DRUGS (1)
  1. ENBREL [Suspect]
     Active Substance: ETANERCEPT
     Indication: Rheumatoid arthritis
     Dosage: FREQUENCY : WEEKLY;?
     Route: 058
     Dates: start: 20231215

REACTIONS (4)
  - Post procedural infection [None]
  - Therapy interrupted [None]
  - Rheumatoid arthritis [None]
  - Loss of personal independence in daily activities [None]

NARRATIVE: CASE EVENT DATE: 20241122
